FAERS Safety Report 7606185-8 (Version None)
Quarter: 2011Q3

REPORT INFORMATION
  Report Type: 
  Country: None (occurrence: None)
  Receive Date: 20110713
  Receipt Date: 20110701
  Transmission Date: 20111222
  Serious: Yes (Other)
  Sender: FDA-Public Use
  Company Number: ES-SANOFI-AVENTIS-2011SA036722

PATIENT
  Sex: Male

DRUGS (4)
  1. MULTAQ [Suspect]
     Indication: ATRIAL FIBRILLATION
     Route: 048
     Dates: start: 20110101, end: 20110426
  2. ATORVASTATIN [Concomitant]
  3. ATENOLOL [Concomitant]
  4. SINTROM [Concomitant]

REACTIONS (4)
  - TRANSAMINASES INCREASED [None]
  - DIARRHOEA [None]
  - BLOOD ALKALINE PHOSPHATASE INCREASED [None]
  - CHOLESTATIC LIVER INJURY [None]
